FAERS Safety Report 7769506-1 (Version None)
Quarter: 2011Q3

REPORT INFORMATION
  Report Type: 
  Country: None (occurrence: None)
  Receive Date: 20110922
  Receipt Date: 20110119
  Transmission Date: 20111222
  Serious: No
  Sender: FDA-Public Use
  Company Number: US-ASTRAZENECA-2011SE03505

PATIENT
  Age: 13630 Day
  Sex: Female

DRUGS (7)
  1. SINGULAIR [Concomitant]
  2. XANAX [Concomitant]
  3. NASONEX [Concomitant]
  4. BIAXIN [Concomitant]
  5. CELEXA [Concomitant]
  6. SEROQUEL [Suspect]
     Dosage: 1-2 TABLETS AT NIGHT
     Route: 048
     Dates: start: 20050602
  7. LEVORA 0.15/30-21 [Concomitant]

REACTIONS (5)
  - ACUTE SINUSITIS [None]
  - DIZZINESS [None]
  - CELLULITIS [None]
  - BACK PAIN [None]
  - ABSCESS LIMB [None]
